FAERS Safety Report 5160439-6 (Version None)
Quarter: 2006Q4

REPORT INFORMATION
  Report Type: 
  Country: None (occurrence: None)
  Receive Date: 20061121
  Receipt Date: 20061107
  Transmission Date: 20070319
  Serious: Yes (Hospitalization)
  Sender: FDA-Public Use
  Company Number: 2006SP005804

PATIENT
  Age: 72 Year
  Sex: Male
  Weight: 96 kg

DRUGS (2)
  1. TEMODAR [Suspect]
     Indication: LUNG ADENOCARCINOMA
     Dosage: 75 MG/M2; QD;PO
     Route: 048
     Dates: start: 20061009, end: 20061022
  2. RADIATION [Concomitant]

REACTIONS (4)
  - DEPRESSED LEVEL OF CONSCIOUSNESS [None]
  - METASTASES TO CENTRAL NERVOUS SYSTEM [None]
  - THALAMUS HAEMORRHAGE [None]
  - URINARY INCONTINENCE [None]
